FAERS Safety Report 25415224 (Version 10)
Quarter: 2025Q3

REPORT INFORMATION
  Report Type: Report from Study
  Country: EU (occurrence: EU)
  Receive Date: 20250609
  Receipt Date: 20250926
  Transmission Date: 20251020
  Serious: Yes (Life-Threatening, Hospitalization, Other)
  Sender: ABBVIE
  Company Number: EU-ABBVIE-6315162

PATIENT
  Age: 67 Year
  Sex: Female

DRUGS (13)
  1. HUMIRA [Suspect]
     Active Substance: ADALIMUMAB
     Indication: Colitis ulcerative
     Route: 058
     Dates: start: 20120525, end: 20200210
  2. HUMIRA [Suspect]
     Active Substance: ADALIMUMAB
     Route: 058
     Dates: start: 20200211, end: 20230525
  3. ACENOCOUMAROL [Concomitant]
     Active Substance: ACENOCOUMAROL
     Indication: Anticoagulant therapy
     Route: 048
     Dates: start: 20150701
  4. FENTANYL [Concomitant]
     Active Substance: FENTANYL
     Indication: Colitis ulcerative
     Route: 060
     Dates: start: 20200104
  5. MEBEVERINE [Concomitant]
     Active Substance: MEBEVERINE
     Indication: Colitis ulcerative
     Route: 048
     Dates: start: 20150601
  6. CODEINE [Concomitant]
     Active Substance: CODEINE
     Indication: Chronic obstructive pulmonary disease
     Route: 048
     Dates: start: 20200203
  7. CALCIUM CARBONATE\CHOLECALCIFEROL [Concomitant]
     Active Substance: CALCIUM CARBONATE\CHOLECALCIFEROL
     Indication: Vitamin supplementation
     Route: 048
     Dates: start: 20190826
  8. ARTOVASTATINE [Concomitant]
     Indication: Hypercholesterolaemia
     Route: 048
     Dates: start: 20180719
  9. FLUTICASONE [Concomitant]
     Active Substance: FLUTICASONE
     Indication: Chronic sinusitis
     Route: 045
     Dates: start: 20191022
  10. TIOTROPIUM [Concomitant]
     Active Substance: TIOTROPIUM
     Indication: Chronic obstructive pulmonary disease
     Route: 055
     Dates: start: 20191022
  11. CHLORAMPHENICOL [Concomitant]
     Active Substance: CHLORAMPHENICOL
     Indication: Blepharitis
     Route: 003
     Dates: start: 20200925, end: 20250331
  12. ESOMEPRAZOLE [Concomitant]
     Active Substance: ESOMEPRAZOLE
     Indication: Gastrooesophageal reflux disease
     Route: 048
     Dates: start: 20210216
  13. ESTRIOL [Concomitant]
     Active Substance: ESTRIOL
     Indication: Product used for unknown indication
     Route: 067
     Dates: start: 20250217

REACTIONS (3)
  - Stenosis [Recovered/Resolved]
  - Diverticulitis [Recovered/Resolved]
  - Pneumonia [Recovered/Resolved]

NARRATIVE: CASE EVENT DATE: 20250402
